FAERS Safety Report 8470437-2 (Version None)
Quarter: 2012Q2

REPORT INFORMATION
  Report Type: 
  Country: None (occurrence: None)
  Receive Date: 20120627
  Receipt Date: 20120618
  Transmission Date: 20120825
  Serious: Yes (Other)
  Sender: FDA-Public Use
  Company Number: US-US-EMD SERONO, INC.-7141762

PATIENT
  Sex: Female
  Weight: 77 kg

DRUGS (10)
  1. MOTRIN [Concomitant]
     Indication: PAIN
     Route: 048
  2. SAIZEN [Suspect]
     Indication: GROWTH HORMONE DEFICIENCY
     Route: 057
  3. ZOLOFT [Concomitant]
     Indication: PRODUCT USED FOR UNKNOWN INDICATION
  4. STEROIDS [Concomitant]
     Indication: PRODUCT USED FOR UNKNOWN INDICATION
  5. FERROUS GLUCONATE [Concomitant]
     Indication: PRODUCT USED FOR UNKNOWN INDICATION
     Route: 048
  6. VITAMIN D [Concomitant]
     Indication: PRODUCT USED FOR UNKNOWN INDICATION
     Route: 048
  7. HYDROCORTISONE ACETATE [Concomitant]
     Route: 048
  8. ACETAMINOPHEN [Concomitant]
     Indication: PRODUCT USED FOR UNKNOWN INDICATION
     Route: 048
  9. SYNTHROID [Concomitant]
     Indication: HYPOTHYROIDISM
  10. HYDROCORTISONE ACETATE [Concomitant]
     Indication: PRODUCT USED FOR UNKNOWN INDICATION
     Route: 048

REACTIONS (20)
  - DYSPNOEA [None]
  - INSOMNIA [None]
  - NAUSEA [None]
  - NIGHT SWEATS [None]
  - MENORRHAGIA [None]
  - NASAL SEPTUM DEVIATION [None]
  - CHEST PAIN [None]
  - DIZZINESS [None]
  - PALPITATIONS [None]
  - ALOPECIA [None]
  - OEDEMA PERIPHERAL [None]
  - ANAEMIA [None]
  - ERYTHEMA [None]
  - MUSCULAR WEAKNESS [None]
  - HEADACHE [None]
  - LIBIDO DECREASED [None]
  - HOT FLUSH [None]
  - WEIGHT DECREASED [None]
  - ANXIETY [None]
  - DEPRESSION [None]
